FAERS Safety Report 10684681 (Version 1)
Quarter: 2014Q4

REPORT INFORMATION
  Report Type: Spontaneous
  Country: US (occurrence: None)
  Receive Date: 20141230
  Receipt Date: 20141230
  Transmission Date: 20150529
  Serious: No
  Sender: FDA-Public Use
  Company Number: None

PATIENT
  Age: 48 Year
  Sex: Female
  Weight: 56.7 kg

DRUGS (1)
  1. TAMIFLU [Suspect]
     Active Substance: OSELTAMIVIR PHOSPHATE
     Indication: INFLUENZA
     Dosage: 75MG (ONE PILL) TWICE DAILY  TAKEN BY MOUTH
     Route: 048
     Dates: start: 20141220, end: 20141225

REACTIONS (7)
  - Panic attack [None]
  - Dysgeusia [None]
  - Pupils unequal [None]
  - Paraesthesia [None]
  - Joint range of motion decreased [None]
  - Anxiety [None]
  - Paranoia [None]

NARRATIVE: CASE EVENT DATE: 20141226
